FAERS Safety Report 17023380 (Version 2)
Quarter: 2020Q2

REPORT INFORMATION
  Report Type: Report from Study
  Country: None (occurrence: US)
  Receive Date: 20191112
  Receipt Date: 20200508
  Transmission Date: 20200713
  Serious: Yes (Hospitalization, Other)
  Sender: FDA-Public Use
  Company Number: US-ABBVIE-19K-163-2997484-00

PATIENT
  Age: 75 Year
  Sex: Male
  Weight: 115.77 kg

DRUGS (4)
  1. METHOTREXATE. [Suspect]
     Active Substance: METHOTREXATE
     Indication: PRODUCT USED FOR UNKNOWN INDICATION
     Route: 065
  2. HUMIRA [Suspect]
     Active Substance: ADALIMUMAB
     Indication: RHEUMATOID ARTHRITIS
     Route: 058
     Dates: start: 201705, end: 2019
  3. HUMIRA [Suspect]
     Active Substance: ADALIMUMAB
     Indication: UVEITIS
     Route: 058
     Dates: start: 2019
  4. PREDNISONE. [Suspect]
     Active Substance: PREDNISONE
     Indication: PRODUCT USED FOR UNKNOWN INDICATION
     Route: 065

REACTIONS (16)
  - Lung disorder [Recovering/Resolving]
  - Device issue [Unknown]
  - Tooth loss [Unknown]
  - Chills [Recovering/Resolving]
  - Blindness [Unknown]
  - Joint range of motion decreased [Not Recovered/Not Resolved]
  - Cardiac dysfunction [Recovering/Resolving]
  - Paralysis [Unknown]
  - Pneumonia [Unknown]
  - Animal bite [Unknown]
  - Hallucination [Recovering/Resolving]
  - Herpes zoster [Unknown]
  - Herpes ophthalmic [Unknown]
  - Skin fissures [Unknown]
  - Pulmonary fibrosis [Unknown]
  - Mobility decreased [Unknown]

NARRATIVE: CASE EVENT DATE: 2019
